FAERS Safety Report 9094685 (Version 2)
Quarter: 2013Q1

REPORT INFORMATION
  Report Type: Spontaneous
  Country: US (occurrence: US)
  Receive Date: 20130118
  Receipt Date: 20130118
  Transmission Date: 20140127
  Serious: Yes (Other)
  Sender: FDA-Public Use
  Company Number: US-RB-040932-12

PATIENT
  Age: 25 None
  Sex: Female

DRUGS (5)
  1. SUBUTEX [Suspect]
     Indication: DRUG DEPENDENCE
     Route: 060
     Dates: start: 20100616, end: 201101
  2. PERCOCET [Suspect]
     Indication: DRUG DEPENDENCE
     Dosage: DOSING DETAILS UNKNOWN
     Route: 065
     Dates: start: 200604, end: 20100615
  3. OXYCONTIN [Suspect]
     Indication: DRUG DEPENDENCE
     Dosage: DOSING DETAILS UNKNOWN
     Route: 065
     Dates: start: 200604, end: 20100615
  4. ZOFRAN [Suspect]
     Indication: NAUSEA
     Dosage: DOSING DETAILS UNKNOWN
     Route: 065
     Dates: start: 201006, end: 201012
  5. OPIATES [Suspect]
     Indication: DRUG DEPENDENCE
     Dosage: DOSING DETAILS UNKNOWN
     Route: 065
     Dates: start: 200604, end: 20100615

REACTIONS (5)
  - Exposure during pregnancy [Recovered/Resolved]
  - Foetal heart rate abnormal [Recovered/Resolved]
  - Umbilical cord around neck [Recovered/Resolved]
  - Drug abuse [Recovered/Resolved]
  - Premature delivery [Recovered/Resolved]
